FAERS Safety Report 6642603-X (Version None)
Quarter: 2010Q1

REPORT INFORMATION
  Report Type: 
  Country: None (occurrence: None)
  Receive Date: 20100319
  Receipt Date: 20100310
  Transmission Date: 20100710
  Serious: Yes (Other)
  Sender: FDA-Public Use
  Company Number: US-JNJFOC-20100303675

PATIENT
  Sex: Female
  Weight: 52.16 kg

DRUGS (1)
  1. REMICADE [Suspect]
     Indication: DRUG USE FOR UNKNOWN INDICATION
     Route: 042

REACTIONS (5)
  - DEPRESSION [None]
  - DRUG SPECIFIC ANTIBODY PRESENT [None]
  - PSORIASIS [None]
  - SKIN EXFOLIATION [None]
  - SUICIDAL IDEATION [None]
